FAERS Safety Report 10260657 (Version 1)
Quarter: 2014Q2

REPORT INFORMATION
  Report Type: Spontaneous
  Country: US (occurrence: US)
  Receive Date: 20140626
  Receipt Date: 20140626
  Transmission Date: 20141212
  Serious: No
  Sender: FDA-Public Use
  Company Number: US-ASTRAZENECA-2014SE44853

PATIENT
  Sex: 0

DRUGS (1)
  1. SYMBICORT [Suspect]
     Dosage: 160MCG/4.5MCG, DOSE AND FREQUENCY UNKNOWN
     Route: 055
     Dates: start: 20140424

REACTIONS (3)
  - Asthma [Unknown]
  - Bronchitis [Unknown]
  - Drug dose omission [Unknown]
